FAERS Safety Report 21465996 (Version 1)
Quarter: 2022Q4

REPORT INFORMATION
  Report Type: Spontaneous
  Country: US (occurrence: None)
  Receive Date: 20221016
  Receipt Date: 20221016
  Transmission Date: 20230113
  Serious: Yes (Hospitalization, Disabling)
  Sender: FDA-Public Use
  Company Number: None

PATIENT
  Age: 38 Year
  Sex: Male
  Weight: 70.2 kg

DRUGS (4)
  1. CIPROFLOXACIN [Suspect]
     Active Substance: CIPROFLOXACIN
     Indication: Prostatitis
     Dosage: OTHER QUANTITY : 1 TABLET(S);?FREQUENCY : TWICE A DAY;?
     Route: 048
  2. LITHIUM [Concomitant]
     Active Substance: LITHIUM
  3. GABAPENTIN [Concomitant]
     Active Substance: GABAPENTIN
  4. ATIVAN [Concomitant]
     Active Substance: LORAZEPAM

REACTIONS (14)
  - Tremor [None]
  - Feeling cold [None]
  - Anxiety [None]
  - Depression [None]
  - Feeling abnormal [None]
  - Pain [None]
  - Arthralgia [None]
  - Muscular weakness [None]
  - Muscle rupture [None]
  - Cartilage injury [None]
  - Tinnitus [None]
  - Insomnia [None]
  - Suicidal ideation [None]
  - Cognitive disorder [None]

NARRATIVE: CASE EVENT DATE: 20220209
